FAERS Safety Report 24060781 (Version 2)
Quarter: 2024Q3

REPORT INFORMATION
  Report Type: Spontaneous
  Country: CA (occurrence: CA)
  Receive Date: 20240708
  Receipt Date: 20240721
  Transmission Date: 20241017
  Serious: Yes (Other)
  Sender: PFIZER
  Company Number: CA-PFIZER INC-202400207596

PATIENT
  Age: 44 Year
  Sex: Female

DRUGS (4)
  1. METHOTREXATE SODIUM [Suspect]
     Active Substance: METHOTREXATE SODIUM
     Indication: Rheumatoid arthritis
     Dosage: 20 MG, WEEKLY (1X/WEEK)
     Route: 058
  2. SULFASALAZINE [Suspect]
     Active Substance: SULFASALAZINE
     Indication: Rheumatoid arthritis
     Dosage: 1000 MG, 1X/DAY, PO OD
     Route: 048
  3. AMLODIPINE [Concomitant]
     Active Substance: AMLODIPINE BESYLATE
     Dosage: UNK
  4. HYDROXYCHLOROQUINE DIPHOSPHATE [Concomitant]
     Active Substance: HYDROXYCHLOROQUINE DIPHOSPHATE
     Dosage: 200 MG, 1X/DAY, PO OD
     Route: 048

REACTIONS (19)
  - Central nervous system vasculitis [Not Recovered/Not Resolved]
  - Cerebrovascular accident [Unknown]
  - Carotid artery stenosis [Unknown]
  - Moyamoya disease [Unknown]
  - Microscopic polyangiitis [Not Recovered/Not Resolved]
  - Urinary tract infection [Unknown]
  - Hypoaesthesia [Unknown]
  - Paraesthesia [Unknown]
  - Facial asymmetry [Unknown]
  - Dysarthria [Unknown]
  - Tinnitus [Not Recovered/Not Resolved]
  - Vision blurred [Unknown]
  - Disturbance in attention [Unknown]
  - Memory impairment [Unknown]
  - Vasculitis [Unknown]
  - Fear of injection [Unknown]
  - Hypertension [Unknown]
  - Cough [Unknown]
  - Oropharyngeal pain [Unknown]

NARRATIVE: CASE EVENT DATE: 20220101
